FAERS Safety Report 5469431-5 (Version None)
Quarter: 2007Q3

REPORT INFORMATION
  Report Type: 
  Country: None (occurrence: None)
  Receive Date: 20070925
  Receipt Date: 20070925
  Transmission Date: 20080115
  Serious: Yes (Life-Threatening, Hospitalization, Other)
  Sender: FDA-Public Use
  Company Number: None

PATIENT
  Age: 45 Year
  Sex: Female
  Weight: 54.4316 kg

DRUGS (2)
  1. CHANTIX [Suspect]
     Indication: DYSPNOEA
     Dosage: 1 MG MORNING AND EVENIN PO 1/2 MG MORNING AND EVENIN PO
     Route: 048
     Dates: start: 20070421, end: 20070531
  2. CHANTIX [Suspect]
     Indication: DYSPNOEA
     Dosage: 1 MG MORNING AND EVENIN PO 1/2 MG MORNING AND EVENIN PO
     Route: 048
     Dates: start: 20070601, end: 20070909

REACTIONS (15)
  - ABNORMAL BEHAVIOUR [None]
  - AMNESIA [None]
  - ANXIETY [None]
  - BLOOD POTASSIUM DECREASED [None]
  - CONTUSION [None]
  - DEPRESSION [None]
  - DYSPNOEA [None]
  - FIBROMYALGIA [None]
  - GASTRIC DISORDER [None]
  - INSOMNIA [None]
  - MENTAL DISORDER [None]
  - NERVOUS SYSTEM DISORDER [None]
  - PERSONALITY CHANGE [None]
  - PSYCHOTIC DISORDER [None]
  - SLEEP TERROR [None]
